FAERS Safety Report 9680722 (Version 2)
Quarter: 2013Q4

REPORT INFORMATION
  Report Type: Spontaneous
  Country: FR (occurrence: FR)
  Receive Date: 20131111
  Receipt Date: 20131114
  Transmission Date: 20140711
  Serious: Yes (Other)
  Sender: FDA-Public Use
  Company Number: FR-JNJFOC-20131103512

PATIENT
  Age: 46 Year
  Sex: Female

DRUGS (2)
  1. EPITOMAX [Suspect]
     Indication: BIPOLAR DISORDER
     Route: 048
  2. EPITOMAX [Suspect]
     Indication: BIPOLAR DISORDER
     Dosage: 400 MG PER DAY
     Route: 048

REACTIONS (4)
  - Visual acuity reduced [Unknown]
  - Myopia [Recovered/Resolved]
  - Astigmatism [Unknown]
  - Off label use [Unknown]
